FAERS Safety Report 7715362-7 (Version None)
Quarter: 2011Q3

REPORT INFORMATION
  Report Type: 
  Country: None (occurrence: None)
  Receive Date: 20110810
  Receipt Date: 20110525
  Transmission Date: 20111222
  Serious: Yes (Hospitalization)
  Sender: FDA-Public Use
  Company Number: 1000020596

PATIENT
  Sex: Female

DRUGS (2)
  1. CITALOPRAM HYDROBROMIDE [Suspect]
     Indication: DEPRESSION
     Dosage: 40 MG (40 MG, 1 IN 1 D), ORAL
     Route: 048
     Dates: end: 20110421
  2. SAVELLA [Suspect]
     Indication: FIBROMYALGIA
     Dates: start: 20110422, end: 20110101

REACTIONS (2)
  - DEPRESSION [None]
  - SUICIDAL IDEATION [None]
